FAERS Safety Report 21154355 (Version 2)
Quarter: 2023Q2

REPORT INFORMATION
  Report Type: Spontaneous
  Country: BY (occurrence: BY)
  Receive Date: 20220801
  Receipt Date: 20230420
  Transmission Date: 20230722
  Serious: Yes (Life-Threatening, Hospitalization)
  Sender: FDA-Public Use
  Company Number: BY-JNJFOC-20220761665

PATIENT
  Age: 79 Year
  Sex: Male
  Weight: 57.3 kg

DRUGS (9)
  1. SIRTURO [Suspect]
     Active Substance: BEDAQUILINE FUMARATE
     Indication: Tuberculosis
     Route: 048
     Dates: start: 20220621, end: 20220720
  2. PRETOMANID [Suspect]
     Active Substance: PRETOMANID
     Indication: Tuberculosis
     Route: 048
     Dates: start: 20220621, end: 20220720
  3. LINEZOLID [Suspect]
     Active Substance: LINEZOLID
     Indication: Tuberculosis
     Route: 048
     Dates: start: 20220621, end: 20220720
  4. MOXIFLOXACIN [Suspect]
     Active Substance: MOXIFLOXACIN
     Indication: Tuberculosis
     Route: 048
     Dates: start: 20220621, end: 20220714
  5. CLOFAZIMINE [Suspect]
     Active Substance: CLOFAZIMINE
     Indication: Tuberculosis
     Route: 048
     Dates: start: 20220714, end: 20220720
  6. PYRIDOXINE [Concomitant]
     Active Substance: PYRIDOXINE
     Indication: Prophylaxis
     Route: 048
     Dates: start: 20220621
  7. FURAGIN [FURAZIDIN] [Concomitant]
     Indication: Prophylaxis
     Route: 048
     Dates: start: 20220720, end: 20220820
  8. FUROSEMIDE [Concomitant]
     Active Substance: FUROSEMIDE
     Indication: Urinary retention
     Route: 065
     Dates: start: 20220720, end: 20220724
  9. ASPIRIN [Concomitant]
     Active Substance: ASPIRIN
     Indication: Cardiac failure
     Route: 048
     Dates: start: 20220621

REACTIONS (1)
  - Acute kidney injury [Recovered/Resolved]

NARRATIVE: CASE EVENT DATE: 20220718
